FAERS Safety Report 8966972 (Version 1)
Quarter: 2012Q4

REPORT INFORMATION
  Report Type: 
  Country: GB (occurrence: GB)
  Receive Date: 20121217
  Receipt Date: 20121217
  Transmission Date: 20130627
  Serious: Yes (Hospitalization)
  Sender: FDA-Public Use
  Company Number: GB-ELI_LILLY_AND_COMPANY-GB201212002434

PATIENT
  Sex: Female

DRUGS (1)
  1. OLANZAPINE [Suspect]
     Dosage: 1 DF, unknown

REACTIONS (2)
  - Lower respiratory tract infection [Unknown]
  - Aphagia [Unknown]
